FAERS Safety Report 6049298-7 (Version None)
Quarter: 2009Q1

REPORT INFORMATION
  Report Type: 
  Country: None (occurrence: None)
  Receive Date: 20090123
  Receipt Date: 20090113
  Transmission Date: 20090719
  Serious: Yes (Other)
  Sender: FDA-Public Use
  Company Number: FR-PFIZER INC-2008078757

PATIENT
  Sex: Female
  Weight: 73 kg

DRUGS (3)
  1. LYRICA [Suspect]
     Indication: NEURALGIA
     Dates: start: 20080911, end: 20080916
  2. NEURONTIN [Suspect]
  3. COPAXONE [Concomitant]
     Indication: MULTIPLE SCLEROSIS
     Dosage: UNK
     Route: 058
     Dates: start: 20061001

REACTIONS (7)
  - BLISTER [None]
  - DEPRESSION [None]
  - DRUG ERUPTION [None]
  - LEUKOCYTOCLASTIC VASCULITIS [None]
  - RASH PAPULAR [None]
  - SOMNOLENCE [None]
  - WEIGHT INCREASED [None]
